FAERS Safety Report 9044877 (Version 3)
Quarter: 2013Q4

REPORT INFORMATION
  Report Type: Report from Study
  Country: US (occurrence: US)
  Receive Date: 20130130
  Receipt Date: 20131206
  Transmission Date: 20140711
  Serious: Yes (Hospitalization)
  Sender: FDA-Public Use
  Company Number: US-GLAXOSMITHKLINE-A1009997A

PATIENT
  Age: 70 Year
  Sex: Female

DRUGS (9)
  1. ONDANSETRON HYDROCHLORIDE [Suspect]
     Indication: PRODUCT USED FOR UNKNOWN INDICATION
  2. TRASTUZUMAB [Suspect]
     Indication: BREAST CANCER
     Route: 042
     Dates: start: 20121210
  3. BLINDED TRIAL MEDICATION [Concomitant]
     Indication: BREAST CANCER
     Route: 042
     Dates: start: 20121210
  4. PROCARDIA [Concomitant]
     Dates: start: 2005
  5. LIPITOR [Concomitant]
     Dates: start: 2005
  6. PRILOSEC [Concomitant]
     Dates: start: 2009
  7. HYDROCODONE + ACETAMINOPHEN [Concomitant]
     Dates: start: 2012
  8. ATIVAN [Concomitant]
     Dates: start: 20121210
  9. DECADRON [Concomitant]
     Dates: start: 20121209, end: 20130122

REACTIONS (3)
  - Abdominal pain [Recovered/Resolved]
  - Nausea [Recovered/Resolved]
  - Vomiting [Recovered/Resolved]
